FAERS Safety Report 25606262 (Version 2)
Quarter: 2025Q3

REPORT INFORMATION
  Report Type: Spontaneous
  Country: US (occurrence: US)
  Receive Date: 20250725
  Receipt Date: 20250805
  Transmission Date: 20251020
  Serious: Yes (Other)
  Sender: AUROBINDO
  Company Number: US-AUROBINDO-AUR-APL-2025-037535

PATIENT
  Age: 68 Year
  Sex: Male

DRUGS (3)
  1. NAPROXEN [Suspect]
     Active Substance: NAPROXEN
     Indication: Musculoskeletal disorder
     Route: 048
  2. CYCLOBENZAPRINE [Suspect]
     Active Substance: CYCLOBENZAPRINE
     Indication: Musculoskeletal disorder
     Route: 048
  3. CAPSAICIN [Suspect]
     Active Substance: CAPSAICIN
     Indication: Musculoskeletal disorder
     Route: 065

REACTIONS (1)
  - Drug ineffective [Unknown]
